FAERS Safety Report 5812754-8 (Version None)
Quarter: 2008Q3

REPORT INFORMATION
  Report Type: 
  Country: None (occurrence: None)
  Receive Date: 20080714
  Receipt Date: 20080714
  Transmission Date: 20090109
  Serious: Yes (Death, Life-Threatening)
  Sender: FDA-Public Use
  Company Number: None

PATIENT
  Age: 80 Year
  Sex: Female
  Weight: 39.0093 kg

DRUGS (1)
  1. DIGITEK 0.25 MG3/1/00/ [Suspect]
     Indication: ARRHYTHMIA
     Dates: start: 20070301, end: 20080515

REACTIONS (7)
  - ASTHENIA [None]
  - DIZZINESS [None]
  - GAIT DISTURBANCE [None]
  - HEART RATE IRREGULAR [None]
  - HYPOTENSION [None]
  - OPEN WOUND [None]
  - PHARMACEUTICAL PRODUCT COMPLAINT [None]
